FAERS Safety Report 6736299-6 (Version None)
Quarter: 2010Q2

REPORT INFORMATION
  Report Type: 
  Country: None (occurrence: None)
  Receive Date: 20100521
  Receipt Date: 20100512
  Transmission Date: 20101027
  Serious: Yes (Other)
  Sender: FDA-Public Use
  Company Number: NL-JNJFOC-20090101553

PATIENT
  Sex: Female

DRUGS (5)
  1. REMICADE [Suspect]
     Indication: DRUG EXPOSURE DURING PREGNANCY
     Route: 050
  2. REMICADE [Suspect]
     Route: 050
  3. REMICADE [Suspect]
     Route: 050
  4. REMICADE [Suspect]
     Route: 050
  5. PENTASA [Concomitant]
     Indication: DRUG EXPOSURE DURING PREGNANCY
     Route: 050

REACTIONS (2)
  - CAESAREAN SECTION [None]
  - DRUG EXPOSURE DURING PREGNANCY [None]
